FAERS Safety Report 4757809-4 (Version None)
Quarter: 2005Q3

REPORT INFORMATION
  Report Type: 
  Country: None (occurrence: None)
  Receive Date: 20050830
  Receipt Date: 20050816
  Transmission Date: 20060218
  Serious: Yes (Other)
  Sender: FDA-Public Use
  Company Number: 12129

PATIENT
  Age: 39 Year
  Sex: Male

DRUGS (1)
  1. BLEOMYCIN [Suspect]
     Dosage: 30 MG ONCE IT
     Route: 037

REACTIONS (8)
  - BLAST CELL CRISIS [None]
  - BONE PAIN [None]
  - DISEASE PROGRESSION [None]
  - DRUG ADMINISTRATION ERROR [None]
  - DRUG DISPENSING ERROR [None]
  - FEELING ABNORMAL [None]
  - HEADACHE [None]
  - NAUSEA [None]
